FAERS Safety Report 8217649-0 (Version None)
Quarter: 2012Q1

REPORT INFORMATION
  Report Type: 
  Country: None (occurrence: None)
  Receive Date: 20120314
  Receipt Date: 20120302
  Transmission Date: 20120608
  Serious: Yes (Hospitalization)
  Sender: FDA-Public Use
  Company Number: TPA2011A08010

PATIENT
  Age: 84 Year
  Sex: Male

DRUGS (5)
  1. BISOPROLOL FUMARATE [Concomitant]
  2. ADENURIC (FEBUXOSTAT) [Suspect]
     Indication: GOUT
     Dosage: 80 MG (80 MG, 1 IN 1 D) ORAL
     Route: 048
  3. COLCHICINE [Suspect]
     Dosage: ORAL
     Route: 048
  4. IPERTEN (MANIDIPINE HYDROCHLORIDE) [Concomitant]
  5. FUROSEMIDE [Concomitant]

REACTIONS (8)
  - RENAL FAILURE [None]
  - PROSTATE CANCER RECURRENT [None]
  - GENERAL PHYSICAL HEALTH DETERIORATION [None]
  - PRURITUS [None]
  - DERMATITIS BULLOUS [None]
  - CARDIAC FAILURE [None]
  - PHOTOSENSITIVITY REACTION [None]
  - TOXIC SKIN ERUPTION [None]
